FAERS Safety Report 11707210 (Version 1)
Quarter: 2015Q4

REPORT INFORMATION
  Report Type: Spontaneous
  Country: US (occurrence: US)
  Receive Date: 20151106
  Receipt Date: 20151106
  Transmission Date: 20160304
  Serious: Yes (Hospitalization)
  Sender: FDA-Public Use
  Company Number: US-NPS_PHARMACEUTICALS-002578

PATIENT
  Sex: Female

DRUGS (5)
  1. GATTEX [Suspect]
     Active Substance: TEDUGLUTIDE\WATER
     Indication: SHORT-BOWEL SYNDROME
     Dosage: EVERY OTHER DAY DOSING STARTED WHILE IN HOSPITAL,
     Route: 058
     Dates: start: 20150810, end: 201510
  2. GATTEX [Suspect]
     Active Substance: TEDUGLUTIDE\WATER
     Route: 058
     Dates: start: 201510
  3. SIMETHICONE (DIMETHICONE) [Concomitant]
     Active Substance: DIMETHICONE
     Indication: DYSPEPSIA
     Dosage: 30 ML: FOUR TIMES DAILY AS NEEDED:
     Route: 048
  4. GATTEX [Suspect]
     Active Substance: TEDUGLUTIDE\WATER
     Route: 058
     Dates: start: 20150728, end: 2015
  5. TPN [Concomitant]
     Active Substance: AMINO ACIDS\DEXTROSE\ELECTROLYTES NOS\SOYBEAN OIL
     Indication: MEDICAL DIET
     Dosage: DF

REACTIONS (6)
  - Urinary tract infection [Unknown]
  - Nausea [Unknown]
  - Off label use [Unknown]
  - Vomiting [Unknown]
  - Drug dose omission [Recovered/Resolved]
  - Abdominal pain [Not Recovered/Not Resolved]

NARRATIVE: CASE EVENT DATE: 2015
